FAERS Safety Report 10026946 (Version 3)
Quarter: 2014Q2

REPORT INFORMATION
  Report Type: Report from Study
  Country: US (occurrence: US)
  Receive Date: 20140321
  Receipt Date: 20140408
  Transmission Date: 20141212
  Serious: No
  Sender: FDA-Public Use
  Company Number: PHEH2014US004621

PATIENT
  Age: 52 Year
  Sex: Female
  Weight: 67.12 kg

DRUGS (3)
  1. GILENYA [Suspect]
     Indication: MULTIPLE SCLEROSIS
     Dosage: 0.5 MG, QD
     Route: 048
     Dates: start: 20140227, end: 20140315
  2. CYCLOBENZAPRINE [Concomitant]
     Dosage: 10 MG, BID
     Route: 048
  3. PREVACID [Concomitant]
     Dosage: 30 MG, QD
     Route: 048

REACTIONS (4)
  - Chest pain [Recovered/Resolved]
  - Pain [Recovering/Resolving]
  - Back pain [Recovered/Resolved]
  - Gastrooesophageal reflux disease [Recovered/Resolved]
